FAERS Safety Report 5537145-9 (Version None)
Quarter: 2007Q4

REPORT INFORMATION
  Report Type: 
  Country: None (occurrence: None)
  Receive Date: 20071205
  Receipt Date: 20071205
  Transmission Date: 20080405
  Serious: Yes (Other)
  Sender: FDA-Public Use
  Company Number: None

PATIENT
  Age: 63 Year
  Sex: Female
  Weight: 77.1115 kg

DRUGS (2)
  1. PREMARIN [Suspect]
     Indication: ARTIFICIAL MENOPAUSE
     Dosage: 1.25   ONE DAILY  PO
     Route: 048
     Dates: start: 19950101, end: 20020101
  2. PREMARIN [Suspect]
     Indication: ARTIFICIAL MENOPAUSE
     Dosage: .9 MG  ONE DAILY  PO
     Route: 048
     Dates: start: 20020101, end: 20061001

REACTIONS (2)
  - BREAST CANCER STAGE I [None]
  - OESTROGEN RECEPTOR ASSAY POSITIVE [None]
